FAERS Safety Report 12647247 (Version 1)
Quarter: 2016Q3

REPORT INFORMATION
  Report Type: Spontaneous
  Country: US (occurrence: US)
  Receive Date: 20160812
  Receipt Date: 20160812
  Transmission Date: 20161109
  Serious: Yes (Hospitalization)
  Sender: FDA-Public Use
  Company Number: US-SUN PHARMACEUTICAL INDUSTRIES LTD-2016US-121364

PATIENT
  Age: 26 Year
  Sex: Male

DRUGS (4)
  1. CLONIDINE. [Suspect]
     Active Substance: CLONIDINE
     Indication: DRUG DETOXIFICATION
     Route: 065
  2. NITROUS OXIDE. [Suspect]
     Active Substance: NITROUS OXIDE
     Indication: DRUG DETOXIFICATION
  3. PROPOFOL. [Suspect]
     Active Substance: PROPOFOL
     Indication: DRUG DETOXIFICATION
     Route: 065
  4. NALOXONE [Suspect]
     Active Substance: NALOXONE
     Indication: DRUG DETOXIFICATION
     Route: 065

REACTIONS (2)
  - Pulseless electrical activity [Unknown]
  - Necrotising fasciitis [Unknown]
